FAERS Safety Report 12429296 (Version 2)
Quarter: 2019Q2

REPORT INFORMATION
  Report Type: Spontaneous
  Country: IR (occurrence: IR)
  Receive Date: 20160602
  Receipt Date: 20190620
  Transmission Date: 20190711
  Serious: Yes (Life-Threatening, Other)
  Sender: FDA-Public Use
  Company Number: IR-INDIVIOR LIMITED-INDV-091100-2016

PATIENT
  Age: 44 Year
  Sex: Male

DRUGS (2)
  1. METHAMPHETAMINE [Suspect]
     Active Substance: METHAMPHETAMINE
     Indication: PRODUCT USED FOR UNKNOWN INDICATION
     Dosage: UNK
     Route: 065
  2. BUPRENORPHINE. [Suspect]
     Active Substance: BUPRENORPHINE
     Indication: DRUG DEPENDENCE
     Dosage: 2 MG, TWICE DAILY
     Route: 060

REACTIONS (10)
  - Psychotic disorder [Recovered/Resolved]
  - Disorientation [Recovered/Resolved]
  - Eating disorder [Recovered/Resolved]
  - Hallucination [Recovered/Resolved]
  - Delusion [Recovered/Resolved]
  - Condition aggravated [Recovered/Resolved]
  - Drug abuse [Unknown]
  - Product use issue [Unknown]
  - Speech disorder [Recovered/Resolved]
  - Somnolence [Recovered/Resolved]
